FAERS Safety Report 9571932 (Version 2)
Quarter: 2013Q4

REPORT INFORMATION
  Report Type: Spontaneous
  Country: JP (occurrence: JP)
  Receive Date: 20131001
  Receipt Date: 20131001
  Transmission Date: 20140711
  Serious: Yes (Other)
  Sender: FDA-Public Use
  Company Number: JP-TAKEDA-TPA2013A01863

PATIENT
  Sex: 0

DRUGS (8)
  1. FEBURIC [Suspect]
     Indication: HYPERURICAEMIA
     Dosage: 10 MG, QD
     Route: 048
     Dates: start: 20130212, end: 20130222
  2. TAKEPRON [Concomitant]
     Dosage: 15 MG, QD
     Route: 048
  3. ADALAT-CR [Concomitant]
     Dosage: 40 MG, QD
     Route: 048
  4. NORVASC [Concomitant]
     Dosage: 10 MG, QD
     Route: 048
  5. ARTIST [Concomitant]
     Dosage: 5 MG, QD
     Route: 048
  6. BAYASPIRIN [Concomitant]
     Dosage: 100 MG, QD
     Route: 048
  7. LASIX [Concomitant]
     Dosage: 40 MG, QD
     Route: 048
  8. DIART [Concomitant]
     Dosage: 60 MG, QD
     Route: 048

REACTIONS (1)
  - Granulocytopenia [Unknown]
